FAERS Safety Report 13619424 (Version 2)
Quarter: 2017Q2

REPORT INFORMATION
  Report Type: Spontaneous
  Country: US (occurrence: US)
  Receive Date: 20170606
  Receipt Date: 20170607
  Transmission Date: 20170830
  Serious: No
  Sender: FDA-Public Use
  Company Number: US-PURDUE-USA-2016-0132350

PATIENT
  Age: 47 Year
  Sex: Female

DRUGS (1)
  1. BUTRANS [Suspect]
     Active Substance: BUPRENORPHINE
     Indication: PAIN
     Dosage: 20 MCG/HR, WEEKLY
     Route: 062
     Dates: start: 201603, end: 20160711

REACTIONS (6)
  - Wrong technique in product usage process [Unknown]
  - Application site pain [Recovered/Resolved]
  - Application site pruritus [Recovered/Resolved]
  - Application site burn [Recovered/Resolved]
  - Application site erythema [Recovered/Resolved]
  - Application site discharge [Recovered/Resolved]

NARRATIVE: CASE EVENT DATE: 201607
